FAERS Safety Report 20263907 (Version 1)
Quarter: 2021Q4

REPORT INFORMATION
  Report Type: Spontaneous
  Country: FR (occurrence: FR)
  Receive Date: 20211231
  Receipt Date: 20211231
  Transmission Date: 20220303
  Serious: Yes (Hospitalization)
  Sender: FDA-Public Use
  Company Number: FR-BION-010218

PATIENT
  Age: 29 Year

DRUGS (1)
  1. VALPROIC ACID [Suspect]
     Active Substance: VALPROIC ACID
     Indication: Seizure
     Dosage: +GT;12 YEARS TIME TO ONSET OF EVENT FROM FIRST DOSE

REACTIONS (1)
  - Pleural effusion [Recovered/Resolved]
